FAERS Safety Report 6656759-6 (Version None)
Quarter: 2010Q1

REPORT INFORMATION
  Report Type: 
  Country: None (occurrence: None)
  Receive Date: 20100324
  Receipt Date: 20100308
  Transmission Date: 20100710
  Serious: Yes (Other)
  Sender: FDA-Public Use
  Company Number: 2010S1001506

PATIENT
  Age: 62 Year

DRUGS (1)
  1. FLEET ENEMA (SODIUM PHOSPHATE) [Suspect]
     Indication: CONSTIPATION
     Dosage: 133 ML; QD; RTL
     Route: 054
     Dates: start: 20100101, end: 20100101

REACTIONS (2)
  - HYPERPHOSPHATAEMIA [None]
  - RENAL FAILURE ACUTE [None]
